FAERS Safety Report 19849878 (Version 5)
Quarter: 2022Q3

REPORT INFORMATION
  Report Type: Spontaneous
  Country: US (occurrence: US)
  Receive Date: 20210917
  Receipt Date: 20220812
  Transmission Date: 20221026
  Serious: Yes (Hospitalization, Other)
  Sender: FDA-Public Use
  Company Number: US-CATALYST PHARMACEUTICALS, INC-2021CAT00328

PATIENT
  Sex: Female
  Weight: 54.422 kg

DRUGS (31)
  1. FIRDAPSE [Suspect]
     Active Substance: AMIFAMPRIDINE PHOSPHATE
     Indication: Myasthenic syndrome
     Dosage: UNK
     Route: 048
     Dates: start: 202105
  2. FIRDAPSE [Suspect]
     Active Substance: AMIFAMPRIDINE PHOSPHATE
     Dosage: 15 MG, 4X/DAY
     Route: 048
     Dates: start: 202106, end: 20210706
  3. FIRDAPSE [Suspect]
     Active Substance: AMIFAMPRIDINE PHOSPHATE
     Dosage: 20 MG, 4X/DAY
     Route: 048
     Dates: start: 20210707, end: 20210707
  4. FIRDAPSE [Suspect]
     Active Substance: AMIFAMPRIDINE PHOSPHATE
     Dosage: 15 MG, 4X/DAY
     Route: 048
     Dates: start: 20210708, end: 2021
  5. FIRDAPSE [Suspect]
     Active Substance: AMIFAMPRIDINE PHOSPHATE
     Dosage: 65 MG PER DAY
     Route: 048
     Dates: start: 2021
  6. FIRDAPSE [Suspect]
     Active Substance: AMIFAMPRIDINE PHOSPHATE
     Dosage: 15 MG, 4X/DAY
     Route: 048
  7. FIRDAPSE [Suspect]
     Active Substance: AMIFAMPRIDINE PHOSPHATE
     Dosage: 10 MG, EVERY 5 HOURS
     Route: 048
     Dates: start: 2021
  8. FIRDAPSE [Suspect]
     Active Substance: AMIFAMPRIDINE PHOSPHATE
     Dosage: ^MORE^, AS NEEDED
     Route: 048
     Dates: start: 2021
  9. FIRDAPSE [Suspect]
     Active Substance: AMIFAMPRIDINE PHOSPHATE
     Dosage: 15 MG, 4X/DAY
     Route: 048
  10. FIRDAPSE [Suspect]
     Active Substance: AMIFAMPRIDINE PHOSPHATE
     Dosage: 15 MG, 4X/DAY
     Route: 048
  11. FIRDAPSE [Suspect]
     Active Substance: AMIFAMPRIDINE PHOSPHATE
     Dosage: LOWER DOSE
     Route: 048
     Dates: end: 2022
  12. FIRDAPSE [Suspect]
     Active Substance: AMIFAMPRIDINE PHOSPHATE
     Dosage: 15 MG, 4X/DAY
     Route: 048
     Dates: start: 202204, end: 2022
  13. FIRDAPSE [Suspect]
     Active Substance: AMIFAMPRIDINE PHOSPHATE
     Dosage: 15 MG, 5X/DAY (0100, 0600, 1100, 1600, 2100)
     Route: 048
     Dates: start: 2022
  14. PREDNISONE [Concomitant]
     Active Substance: PREDNISONE
     Dosage: 5 MG DAILY
  15. PREDNISONE [Concomitant]
     Active Substance: PREDNISONE
     Dosage: 40 MG, 1X/DAY WITH BREAKFAST
     Route: 048
  16. XARELTO [Concomitant]
     Active Substance: RIVAROXABAN
     Dosage: 20 MG, 1X/DAY
  17. CELEXA [Concomitant]
     Active Substance: CITALOPRAM HYDROBROMIDE
     Dosage: 20 MG, DAILY
  18. CELEXA [Concomitant]
     Active Substance: CITALOPRAM HYDROBROMIDE
     Dosage: 40 MG, 1X/DAY EVERY NIGHT
     Route: 048
  19. PYRIDOSTIGMINE [Concomitant]
     Active Substance: PYRIDOSTIGMINE
     Dosage: 60 MG, EVERY 4 HOURS
  20. GAMMAGARD [Concomitant]
     Active Substance: HUMAN IMMUNOGLOBULIN G
     Dosage: 1 DOSAGE UNITS, 1X/WEEK
     Route: 042
  21. UNSPECIFIED IV STEROID [Concomitant]
     Dosage: 1000 MG EVERY 2 WEEKS
     Route: 042
  22. TRAMADOL [Concomitant]
     Active Substance: TRAMADOL
     Dosage: ABOUT 4 TABLETS/DAY (2 IN THE MORNING AND ONE IN THE AFTERNOON AND SOMETIMES IN THE EVENING)
  23. TRAMADOL [Concomitant]
     Active Substance: TRAMADOL
     Dosage: 50 MG, 2X/DAY AS NEEDED
  24. AMLODIPINE [Concomitant]
     Active Substance: AMLODIPINE BESYLATE
     Dosage: 12.5 MG DAILY
  25. AMLODIPINE [Concomitant]
     Active Substance: AMLODIPINE BESYLATE
     Dosage: 2.5 MG, 1X/DAY
     Route: 048
  26. VITAMIN B12 [Concomitant]
     Active Substance: CYANOCOBALAMIN
     Dosage: 1000 ?G, 1X/MONTH
  27. DOXEPIN [Concomitant]
     Active Substance: DOXEPIN
     Dosage: 6 MG, ONCE NIGHTLY AS NEEDED
  28. HYDROCODONE; ACETAMINOPHEN [Concomitant]
     Dosage: UNK, AS NEEDED
  29. ADULT MULTIVITAMIN [Concomitant]
     Dosage: 1 DOSAGE FORM, 1X/DAY
  30. VITAMIN D [Concomitant]
     Active Substance: VITAMIN D NOS
     Dosage: 400 MG, 1X/DAY
  31. OSMOLITE [Concomitant]
     Dosage: 1 CAN, 4X/DAY
     Route: 048

REACTIONS (29)
  - Gait inability [Not Recovered/Not Resolved]
  - Paralysis [Recovering/Resolving]
  - Condition aggravated [Recovering/Resolving]
  - Oesophageal candidiasis [Recovering/Resolving]
  - Asthenia [Recovering/Resolving]
  - Hypoaesthesia [Recovering/Resolving]
  - Dysphagia [Recovering/Resolving]
  - Malnutrition [Recovering/Resolving]
  - Speech disorder [Not Recovered/Not Resolved]
  - Fear [Recovering/Resolving]
  - Product dose omission issue [Recovered/Resolved]
  - Inappropriate schedule of product administration [Not Recovered/Not Resolved]
  - Feeling cold [Recovered/Resolved]
  - Stomatitis [Recovering/Resolving]
  - Nasal crusting [Unknown]
  - Therapeutic product effect incomplete [Not Recovered/Not Resolved]
  - Oesophageal pain [Recovering/Resolving]
  - Movement disorder [Not Recovered/Not Resolved]
  - Dry mouth [Not Recovered/Not Resolved]
  - Therapeutic response shortened [Not Recovered/Not Resolved]
  - Haemorrhoids [Not Recovered/Not Resolved]
  - Anxiety [Unknown]
  - Hypoaesthesia oral [Recovering/Resolving]
  - Fall [Recovered/Resolved]
  - Back pain [Not Recovered/Not Resolved]
  - Constipation [Not Recovered/Not Resolved]
  - Unevaluable event [Unknown]
  - Abdominal pain upper [Recovering/Resolving]
  - Depression [Unknown]

NARRATIVE: CASE EVENT DATE: 20210101
